FAERS Safety Report 7927796-6 (Version None)
Quarter: 2011Q4

REPORT INFORMATION
  Report Type: 
  Country: None (occurrence: None)
  Receive Date: 20111118
  Receipt Date: 20111109
  Transmission Date: 20120403
  Serious: Yes (Hospitalization)
  Sender: FDA-Public Use
  Company Number: US-JNJFOC-20111007314

PATIENT
  Sex: Male
  Weight: 60.5 kg

DRUGS (7)
  1. PROTONIX [Concomitant]
  2. INFLIXIMAB, RECOMBINANT [Suspect]
     Indication: CROHN'S DISEASE
     Route: 042
     Dates: start: 20100917
  3. ANTIBIOTICS [Concomitant]
     Indication: INFLAMMATORY BOWEL DISEASE
  4. PREDNISONE TAB [Concomitant]
  5. PRILOSEC [Concomitant]
  6. INFLIXIMAB, RECOMBINANT [Suspect]
     Route: 042
     Dates: start: 20110919
  7. MESALAMINE [Concomitant]

REACTIONS (1)
  - CROHN'S DISEASE [None]
